FAERS Safety Report 8572376-5 (Version None)
Quarter: 2012Q3

REPORT INFORMATION
  Report Type: 
  Country: None (occurrence: None)
  Receive Date: 20120806
  Receipt Date: 20120726
  Transmission Date: 20120928
  Serious: Yes (Other)
  Sender: FDA-Public Use
  Company Number: VE-ASTRAZENECA-2012SE53895

PATIENT
  Age: 19588 Day
  Sex: Male
  Weight: 94 kg

DRUGS (3)
  1. PROTON PUMP INHIBITOR [Concomitant]
  2. KETOPROFEN [Concomitant]
  3. MEROPENEM [Suspect]
     Indication: SEPSIS
     Route: 042
     Dates: start: 20120718, end: 20120725

REACTIONS (2)
  - SKIN NECROSIS [None]
  - SOFT TISSUE NECROSIS [None]
